FAERS Safety Report 4966068-9 (Version None)
Quarter: 2006Q2

REPORT INFORMATION
  Report Type: 
  Country: None (occurrence: None)
  Receive Date: 20060407
  Receipt Date: 20060327
  Transmission Date: 20061013
  Serious: Yes (Other)
  Sender: FDA-Public Use
  Company Number: PHEH2006US04069

PATIENT
  Sex: Female

DRUGS (1)
  1. LOTREL [Suspect]
     Dosage: 10/20MG
     Route: 048
     Dates: start: 20010101, end: 20060301

REACTIONS (3)
  - ALOPECIA [None]
  - GINGIVAL OPERATION [None]
  - TOOTH LOSS [None]
